FAERS Safety Report 16794397 (Version 1)
Quarter: 2019Q4

REPORT INFORMATION
  Report Type: Spontaneous
  Country: US (occurrence: US)
  Receive Date: 20190910
  Receipt Date: 20190910
  Transmission Date: 20200122
  Serious: Yes (Disabling)
  Sender: FDA-Public Use
  Company Number: None

PATIENT
  Age: 63 Year
  Sex: Female
  Weight: 69.75 kg

DRUGS (2)
  1. MULTI-VITAMIN [Concomitant]
     Active Substance: .ALPHA.-TOCOPHEROL ACETATE, DL-\ASCORBIC ACID\CYANOCOBALAMIN\FLUORIDE ION\FOLIC ACID\NIACIN\PYRIDOXINE\RIBOFLAVIN\THIAMINE\VITAMIN A\VITAMIN D
  2. CIPROFLOXACIN. [Suspect]
     Active Substance: CIPROFLOXACIN
     Indication: URINARY TRACT INFECTION
     Dosage: ?          QUANTITY:20 TABLET(S);?
     Route: 048
     Dates: start: 19900101, end: 20190907

REACTIONS (13)
  - Burning sensation [None]
  - Neuropathy peripheral [None]
  - Pain [None]
  - Product use complaint [None]
  - Insomnia [None]
  - Chest pain [None]
  - Anxiety [None]
  - Muscle twitching [None]
  - Ocular hyperaemia [None]
  - Palpitations [None]
  - Paraesthesia [None]
  - Abdominal pain upper [None]
  - Dry eye [None]

NARRATIVE: CASE EVENT DATE: 20190907
